FAERS Safety Report 4924535-8 (Version None)
Quarter: 2006Q1

REPORT INFORMATION
  Report Type: 
  Country: None (occurrence: None)
  Receive Date: 20060227
  Receipt Date: 20060215
  Transmission Date: 20060701
  Serious: Yes (Life-Threatening, Other)
  Sender: FDA-Public Use
  Company Number: PHEH2006US02226

PATIENT
  Age: 46 Year
  Sex: Female
  Weight: 69.387 kg

DRUGS (3)
  1. ENABLEX [Suspect]
     Indication: URGE INCONTINENCE
     Route: 048
     Dates: start: 20060130, end: 20060203
  2. ENABLEX [Suspect]
     Route: 048
     Dates: start: 20060130, end: 20060203
  3. LORAZEPAM [Concomitant]
     Dosage: 1 MG, QD

REACTIONS (6)
  - ANGIONEUROTIC OEDEMA [None]
  - RASH [None]
  - STRIDOR [None]
  - SWOLLEN TONGUE [None]
  - THROAT TIGHTNESS [None]
  - URTICARIA [None]
